FAERS Safety Report 12922585 (Version 1)
Quarter: 2016Q4

REPORT INFORMATION
  Report Type: Spontaneous
  Country: US (occurrence: US)
  Receive Date: 20161109
  Receipt Date: 20161109
  Transmission Date: 20170207
  Serious: No
  Sender: FDA-Public Use
  Company Number: US-JNJFOC-20161101721

PATIENT
  Age: 12 Year
  Sex: Female
  Weight: 47.17 kg

DRUGS (3)
  1. CHILDRENS ZYRTEC ALLERGY [Suspect]
     Active Substance: CETIRIZINE HYDROCHLORIDE
     Indication: THROAT IRRITATION
     Route: 048
     Dates: start: 20161101, end: 20161101
  2. CHILDRENS ZYRTEC ALLERGY [Suspect]
     Active Substance: CETIRIZINE HYDROCHLORIDE
     Indication: OCULAR HYPERAEMIA
     Route: 048
     Dates: start: 20161101, end: 20161101
  3. CHILDRENS ZYRTEC ALLERGY [Suspect]
     Active Substance: CETIRIZINE HYDROCHLORIDE
     Indication: MALAISE
     Route: 048
     Dates: start: 20161101, end: 20161101

REACTIONS (5)
  - Lethargy [Not Recovered/Not Resolved]
  - Unintentional use for unapproved indication [Not Recovered/Not Resolved]
  - Asthenia [Not Recovered/Not Resolved]
  - Heart rate increased [Not Recovered/Not Resolved]
  - Hypotension [Not Recovered/Not Resolved]

NARRATIVE: CASE EVENT DATE: 20161101
